FAERS Safety Report 4771205-5 (Version None)
Quarter: 2005Q3

REPORT INFORMATION
  Report Type: 
  Country: None (occurrence: None)
  Receive Date: 20050912
  Receipt Date: 20050711
  Transmission Date: 20060218
  Serious: Yes (Hospitalization)
  Sender: FDA-Public Use
  Company Number: 2005-00417

PATIENT
  Age: 64 Year
  Sex: Male
  Weight: 54 kg

DRUGS (14)
  1. VELCADE [Suspect]
     Indication: MULTIPLE MYELOMA
     Dosage: INTRAVENOUS
     Route: 042
     Dates: start: 20050201
  2. SCIO-469() [Suspect]
     Indication: MULTIPLE MYELOMA
     Dosage: 60.00 MG, TID, ORAL
     Route: 048
     Dates: start: 20050120, end: 20050201
  3. ARSENIC TRIOXIDE (ARSENIC TRIOXIDE) [Concomitant]
  4. ASCORBIC ACID [Concomitant]
  5. MELPHALAN [Concomitant]
  6. PROCRIT [Concomitant]
  7. AREDIA [Concomitant]
  8. KYTRIL [Concomitant]
  9. NEUPORGEN (FILGRASTIM) [Concomitant]
  10. RED BLOOD CELLS [Concomitant]
  11. TYLENOL [Concomitant]
  12. BENADRYL ^PARKE DAVIS^ /ISR/ (DIPHENHYDRAMINE HYDROCHLORIDE) [Concomitant]
  13. HYDROCORTISONE [Concomitant]
  14. ATIVAN [Concomitant]

REACTIONS (7)
  - BLOOD CULTURE POSITIVE [None]
  - FEBRILE NEUTROPENIA [None]
  - HAEMOGLOBIN DECREASED [None]
  - NAUSEA [None]
  - ORAL INTAKE REDUCED [None]
  - PLATELET COUNT DECREASED [None]
  - VOMITING [None]
